FAERS Safety Report 7920194-0 (Version None)
Quarter: 2011Q4

REPORT INFORMATION
  Report Type: 
  Country: None (occurrence: None)
  Receive Date: 20111117
  Receipt Date: 20111114
  Transmission Date: 20120403
  Serious: Yes (Hospitalization)
  Sender: FDA-Public Use
  Company Number: DE-PFIZER INC-2011278178

PATIENT
  Age: 71 Year
  Sex: Male

DRUGS (1)
  1. SUTENT [Suspect]
     Indication: RENAL CANCER METASTATIC
     Dosage: 50 MG, UNK
     Dates: start: 20110906

REACTIONS (6)
  - ARTHRALGIA [None]
  - URINARY TRACT INFECTION [None]
  - GENERAL PHYSICAL HEALTH DETERIORATION [None]
  - PAIN IN EXTREMITY [None]
  - DECREASED APPETITE [None]
  - HYPERHIDROSIS [None]
